FAERS Safety Report 8060967-X (Version None)
Quarter: 2012Q1

REPORT INFORMATION
  Report Type: 
  Country: None (occurrence: None)
  Receive Date: 20120120
  Receipt Date: 20120112
  Transmission Date: 20120608
  Serious: Yes (Other)
  Sender: FDA-Public Use
  Company Number: PHHY2012TR003139

PATIENT
  Age: 28 Year
  Sex: Male

DRUGS (1)
  1. NAPROXEN [Suspect]
     Indication: HEADACHE
     Dosage: 550 MG, UNK

REACTIONS (7)
  - SCAR [None]
  - PRURITUS [None]
  - SKIN LESION [None]
  - DRUG ERUPTION [None]
  - SKIN HYPERPIGMENTATION [None]
  - SKIN PLAQUE [None]
  - RASH ERYTHEMATOUS [None]
